FAERS Safety Report 18439039 (Version 1)
Quarter: 2020Q4

REPORT INFORMATION
  Report Type: Other
  Country: IT (occurrence: IT)
  Receive Date: 20201029
  Receipt Date: 20201029
  Transmission Date: 20210114
  Serious: Yes (Death, Hospitalization)
  Sender: FDA-Public Use
  Company Number: IT-ROCHE-2701812

PATIENT
  Age: 53 Year
  Sex: Male

DRUGS (7)
  1. RITUXIMAB. [Suspect]
     Active Substance: RITUXIMAB
     Dosage: (6 DOSES)
     Route: 065
     Dates: start: 200103
  2. CYCLOPHOSPHAMIDE. [Suspect]
     Active Substance: CYCLOPHOSPHAMIDE
     Dosage: 6 DOSES
     Route: 065
  3. RITUXIMAB. [Suspect]
     Active Substance: RITUXIMAB
     Indication: AUTOIMMUNE HAEMOLYTIC ANAEMIA
     Dosage: UNK
     Route: 065
     Dates: start: 200512
  4. ALEMTUZUMAB [Suspect]
     Active Substance: ALEMTUZUMAB
     Indication: PRODUCT USED FOR UNKNOWN INDICATION
     Dosage: JUL/2007, THE PATIENT RECEIVED MOST RECENT DOSE OF ALEMTUZUMAB
     Route: 065
     Dates: start: 200706
  5. FLUDARABINE [Suspect]
     Active Substance: FLUDARABINE PHOSPHATE
     Route: 065
  6. CYCLOPHOSPHAMIDE. [Suspect]
     Active Substance: CYCLOPHOSPHAMIDE
     Indication: AUTOIMMUNE HAEMOLYTIC ANAEMIA
     Route: 065
     Dates: start: 200512
  7. FLUDARABINE [Suspect]
     Active Substance: FLUDARABINE PHOSPHATE
     Indication: AUTOIMMUNE HAEMOLYTIC ANAEMIA
     Route: 065
     Dates: start: 200512

REACTIONS (15)
  - Alanine aminotransferase increased [Fatal]
  - Lymph node palpable [Fatal]
  - Lymphocyte count decreased [Fatal]
  - Epstein-Barr virus antigen positive [Fatal]
  - Viral load decreased [Fatal]
  - Non-Hodgkin^s lymphoma [Fatal]
  - Aspartate aminotransferase increased [Fatal]
  - Blood lactate dehydrogenase increased [Fatal]
  - Autoimmune haemolytic anaemia [Fatal]
  - Liver disorder [Fatal]
  - Multiple organ dysfunction syndrome [Fatal]
  - Pyrexia [Fatal]
  - Cytomegalovirus syndrome [Fatal]
  - Drug ineffective [Fatal]
  - Hepatomegaly [Fatal]

NARRATIVE: CASE EVENT DATE: 200710
